FAERS Safety Report 6606496-9 (Version None)
Quarter: 2010Q1

REPORT INFORMATION
  Report Type: 
  Country: None (occurrence: None)
  Receive Date: 20100226
  Receipt Date: 20100217
  Transmission Date: 20100710
  Serious: Yes (Other)
  Sender: FDA-Public Use
  Company Number: PHHO2010US02828

PATIENT

DRUGS (1)
  1. CERTICAN [Suspect]
     Indication: ORGAN TRANSPLANT
     Dosage: UNK

REACTIONS (7)
  - ALANINE AMINOTRANSFERASE INCREASED [None]
  - ASPARTATE AMINOTRANSFERASE INCREASED [None]
  - BLOOD CREATINE PHOSPHOKINASE INCREASED [None]
  - BLOOD CREATININE INCREASED [None]
  - BLOOD UREA INCREASED [None]
  - BRAIN NATRIURETIC PEPTIDE INCREASED [None]
  - TROPONIN INCREASED [None]
